FAERS Safety Report 13067735 (Version 3)
Quarter: 2017Q1

REPORT INFORMATION
  Report Type: Report from Study
  Country: DE (occurrence: DE)
  Receive Date: 20161228
  Receipt Date: 20170118
  Transmission Date: 20170428
  Serious: Yes (Life-Threatening, Hospitalization, Other)
  Sender: FDA-Public Use
  Company Number: DE-AMGEN-DEUCT2016182423

PATIENT
  Age: 53 Year
  Sex: Male
  Weight: 91.4 kg

DRUGS (8)
  1. PEGFILGRASTIM [Suspect]
     Active Substance: PEGFILGRASTIM
     Indication: ACUTE MYELOID LEUKAEMIA
     Dosage: 6 MG, QD
     Route: 065
     Dates: start: 20161111, end: 20161111
  2. TAZOBAC [Concomitant]
     Active Substance: PIPERACILLIN SODIUM\TAZOBACTAM SODIUM
     Indication: SEPSIS
     Dosage: 4.5 MG, UNK
     Dates: start: 20161117
  3. MEROPENEM. [Concomitant]
     Active Substance: MEROPENEM
     Indication: SEPSIS
     Dosage: 1000 MG, UNK
     Dates: start: 20161118, end: 20161122
  4. ZYVOXID [Concomitant]
     Active Substance: LINEZOLID
     Indication: SEPSIS
     Dosage: 600 MG, UNK
     Dates: start: 20161118, end: 20161122
  5. GEMTUZUMAB OZOGAMICIN [Suspect]
     Active Substance: GEMTUZUMAB OZOGAMICIN
     Indication: ACUTE MYELOID LEUKAEMIA
     Dosage: 6.60 MG, QD
     Route: 065
     Dates: start: 20161108, end: 20161110
  6. TRETINOIN. [Suspect]
     Active Substance: TRETINOIN
     Indication: ACUTE MYELOID LEUKAEMIA
     Dosage: 30 MG, QD
     Route: 065
     Dates: start: 20161111, end: 20161117
  7. CYTARABINE. [Suspect]
     Active Substance: CYTARABINE
     Indication: ACUTE MYELOID LEUKAEMIA
     Dosage: 13200 MG, QD
     Route: 065
     Dates: start: 20161108, end: 20161110
  8. TRETINOIN. [Suspect]
     Active Substance: TRETINOIN
     Dosage: 30 MG, QD
     Route: 065
     Dates: start: 20161125, end: 20161128

REACTIONS (1)
  - Sepsis [Recovered/Resolved]

NARRATIVE: CASE EVENT DATE: 20161116
